FAERS Safety Report 7529449-5 (Version None)
Quarter: 2011Q2

REPORT INFORMATION
  Report Type: 
  Country: None (occurrence: None)
  Receive Date: 20110531
  Receipt Date: 20110517
  Transmission Date: 20111010
  Serious: Yes (Death, Hospitalization)
  Sender: FDA-Public Use
  Company Number: 2011MA006014

PATIENT
  Age: 44 Year
  Sex: Female

DRUGS (3)
  1. FEVERALL [Suspect]
     Dosage: 3 G
  2. CEREMONIAL JOSS PAPER [Concomitant]
  3. IBUPROFEN [Concomitant]

REACTIONS (11)
  - MALAISE [None]
  - ABDOMINAL TENDERNESS [None]
  - HEPATIC STEATOSIS [None]
  - HEPATIC FAILURE [None]
  - TACHYCARDIA [None]
  - BRAIN HERNIATION [None]
  - HEPATOMEGALY [None]
  - HYPOTENSION [None]
  - PYREXIA [None]
  - BRAIN OEDEMA [None]
  - RENAL IMPAIRMENT [None]
